FAERS Safety Report 7775898-X (Version None)
Quarter: 2011Q3

REPORT INFORMATION
  Report Type: 
  Country: None (occurrence: None)
  Receive Date: 20110923
  Receipt Date: 20110912
  Transmission Date: 20111222
  Serious: Yes (Hospitalization, Other)
  Sender: FDA-Public Use
  Company Number: DE-ELI_LILLY_AND_COMPANY-DE201105006617

PATIENT
  Age: 86 Year
  Sex: Female

DRUGS (5)
  1. CALCIUM + VITAMIN D [Concomitant]
     Dosage: UNK, UNKNOWN
     Route: 065
  2. AMLODIPINE BESYLATE [Concomitant]
     Dosage: UNK, UNKNOWN
     Route: 065
  3. FORTEO [Suspect]
     Indication: OSTEOPOROSIS
     Dosage: UNK, QD
     Route: 058
     Dates: start: 20100210
  4. FORTEO [Suspect]
     Dosage: UNK UNK, WEEKLY (1/W)
     Route: 058
     Dates: start: 20100201
  5. ROCORNAL [Concomitant]
     Dosage: UNK, UNKNOWN
     Route: 065

REACTIONS (5)
  - LEIOMYOMA [None]
  - CARDIAC PACEMAKER REPLACEMENT [None]
  - DIZZINESS [None]
  - DIZZINESS POSTURAL [None]
  - INAPPROPRIATE SCHEDULE OF DRUG ADMINISTRATION [None]
